FAERS Safety Report 5340872-X (Version None)
Quarter: 2007Q2

REPORT INFORMATION
  Report Type: 
  Country: None (occurrence: None)
  Receive Date: 20070531
  Receipt Date: 20070525
  Transmission Date: 20071010
  Serious: Yes (Hospitalization)
  Sender: FDA-Public Use
  Company Number: GB-ABBOTT-07P-167-0367309-00

PATIENT
  Sex: Male

DRUGS (6)
  1. EPILIM [Suspect]
     Indication: EPILEPSY
     Dosage: STARTED ON HIGH DOSES
     Route: 048
     Dates: start: 20050501, end: 20070501
  2. GLICLAZIDE [Concomitant]
     Indication: DIABETES MELLITUS
  3. ATORVASTATIN [Concomitant]
     Indication: DIABETES MELLITUS
  4. ANTIEPILEPTICS [Concomitant]
     Indication: EPILEPSY
  5. LANTANOPROST [Concomitant]
     Indication: GLAUCOMA
  6. ACETYLSALICYLIC ACID SRT [Concomitant]
     Indication: DIABETES MELLITUS

REACTIONS (2)
  - FATIGUE [None]
  - SOMNOLENCE [None]
